FAERS Safety Report 6612060-8 (Version None)
Quarter: 2010Q1

REPORT INFORMATION
  Report Type: 
  Country: None (occurrence: None)
  Receive Date: 20100303
  Receipt Date: 20100221
  Transmission Date: 20100710
  Serious: Yes (Hospitalization, Other)
  Sender: FDA-Public Use
  Company Number: B0633786A

PATIENT
  Age: 49 Year
  Sex: Male

DRUGS (1)
  1. LAMIVUDINE [Suspect]
     Indication: HEPATITIS B
     Route: 065

REACTIONS (8)
  - ANGIOEDEMA [None]
  - ASTHMA [None]
  - CYANOSIS [None]
  - HYPERSENSITIVITY [None]
  - HYPOTENSION [None]
  - OROPHARYNGEAL SWELLING [None]
  - SWOLLEN TONGUE [None]
  - URTICARIA [None]
